FAERS Safety Report 4682419-7 (Version None)
Quarter: 2005Q2

REPORT INFORMATION
  Report Type: 
  Country: None (occurrence: None)
  Receive Date: 20050602
  Receipt Date: 20050602
  Transmission Date: 20051028
  Serious: Yes (Hospitalization)
  Sender: FDA-Public Use
  Company Number: None

PATIENT
  Age: 71 Year
  Sex: Male
  Weight: 88 kg

DRUGS (1)
  1. SEROQUEL [Suspect]
     Dosage: 500 MG PO HS
     Route: 048
     Dates: start: 20050318

REACTIONS (1)
  - CONVULSION [None]
